FAERS Safety Report 20762989 (Version 2)
Quarter: 2022Q2

REPORT INFORMATION
  Report Type: Spontaneous
  Country: US (occurrence: None)
  Receive Date: 20220428
  Receipt Date: 20220609
  Transmission Date: 20220721
  Serious: No
  Sender: FDA-Public Use
  Company Number: 2022A145116

PATIENT
  Age: 847 Month
  Sex: Male
  Weight: 117.9 kg

DRUGS (1)
  1. BYDUREON BCISE [Suspect]
     Active Substance: EXENATIDE
     Indication: Type 2 diabetes mellitus
     Route: 058

REACTIONS (9)
  - COVID-19 [Recovered/Resolved]
  - Weight fluctuation [Not Recovered/Not Resolved]
  - Appetite disorder [Not Recovered/Not Resolved]
  - Eating disorder [Not Recovered/Not Resolved]
  - Injection site pain [Not Recovered/Not Resolved]
  - Injection site haemorrhage [Unknown]
  - Incorrect dose administered by device [Unknown]
  - Device issue [Unknown]
  - Device leakage [Unknown]

NARRATIVE: CASE EVENT DATE: 20220101
